FAERS Safety Report 10215152 (Version 5)
Quarter: 2014Q4

REPORT INFORMATION
  Report Type: Spontaneous
  Country: CA (occurrence: CA)
  Receive Date: 20140603
  Receipt Date: 20141215
  Transmission Date: 20150528
  Serious: Yes (Hospitalization, Other)
  Sender: FDA-Public Use
  Company Number: PHHY2014CA067088

PATIENT
  Age: 31 Year
  Sex: Female

DRUGS (5)
  1. STEMETIL [Suspect]
     Active Substance: PROCHLORPERAZINE MALEATE
     Indication: PRODUCT USED FOR UNKNOWN INDICATION
     Dosage: UNK UKN, UNK
     Route: 065
  2. LIORESAL [Suspect]
     Active Substance: BACLOFEN
     Indication: MUSCLE SPASMS
     Dosage: 1227 UG, PER DAY
     Route: 037
  3. LIORESAL [Suspect]
     Active Substance: BACLOFEN
     Dosage: 12.7 UG, PER DAY
     Route: 037
  4. LIORESAL [Suspect]
     Active Substance: BACLOFEN
     Dosage: 661.3 UG, PER DAY
     Route: 037
     Dates: end: 20140727
  5. LIORESAL [Suspect]
     Active Substance: BACLOFEN
     Dosage: 1105 UG, PER DAY
     Route: 037

REACTIONS (23)
  - Thyroid disorder [Unknown]
  - Vomiting [Recovered/Resolved]
  - No therapeutic response [Recovered/Resolved]
  - Seizure [Recovered/Resolved]
  - Confusional state [Recovered/Resolved]
  - Somnolence [Recovered/Resolved]
  - Overdose [Recovered/Resolved]
  - Muscle spasticity [Recovered/Resolved]
  - Aggression [Recovered/Resolved]
  - Drug hypersensitivity [Recovered/Resolved]
  - Impaired healing [Unknown]
  - Implant site haemorrhage [Recovered/Resolved]
  - Implant site erosion [Unknown]
  - Incision site infection [Unknown]
  - Muscle spasms [Recovered/Resolved]
  - Petit mal epilepsy [Recovered/Resolved]
  - Generalised tonic-clonic seizure [Recovered/Resolved]
  - Tachycardia [Recovered/Resolved]
  - Pruritus [Recovered/Resolved]
  - Drug withdrawal syndrome [Recovered/Resolved]
  - Wound dehiscence [Unknown]
  - Dehydration [Recovered/Resolved]
  - Muscular weakness [Recovered/Resolved]

NARRATIVE: CASE EVENT DATE: 20140516
